FAERS Safety Report 13274987 (Version 2)
Quarter: 2017Q1

REPORT INFORMATION
  Report Type: Report from Study
  Country: US (occurrence: US)
  Receive Date: 20170227
  Receipt Date: 20170302
  Transmission Date: 20170428
  Serious: Yes (Other)
  Sender: FDA-Public Use
  Company Number: US-GILEAD-2017-0259633

PATIENT
  Age: 72 Year
  Sex: Male

DRUGS (2)
  1. RANOLAZINE [Suspect]
     Active Substance: RANOLAZINE
     Indication: ANGINA PECTORIS
     Dosage: 1000 MG, UNK
     Route: 048
     Dates: start: 2016
  2. RANOLAZINE [Suspect]
     Active Substance: RANOLAZINE
     Dosage: 500 UNK, UNK
     Route: 048

REACTIONS (9)
  - Cardiac failure [Not Recovered/Not Resolved]
  - Fall [Unknown]
  - Abasia [Unknown]
  - Dizziness [Unknown]
  - Amnesia [Not Recovered/Not Resolved]
  - Pain [Unknown]
  - Cerebrovascular accident [Not Recovered/Not Resolved]
  - Prostate cancer [Not Recovered/Not Resolved]
  - Drug dose omission [Unknown]
